FAERS Safety Report 13883293 (Version 2)
Quarter: 2017Q3

REPORT INFORMATION
  Report Type: Spontaneous
  Country: TW (occurrence: TW)
  Receive Date: 20170818
  Receipt Date: 20170901
  Transmission Date: 20171127
  Serious: Yes (Other)
  Sender: FDA-Public Use
  Company Number: TW-REGENERON PHARMACEUTICALS, INC.-2017-20476

PATIENT

DRUGS (1)
  1. EYLEA [Suspect]
     Active Substance: AFLIBERCEPT
     Indication: DIABETIC RETINOPATHY
     Dosage: TOTAL DOSES AND LAST DOSE PRIOR THE EVENT WERE NOT PROVIDED
     Route: 031

REACTIONS (3)
  - Product use in unapproved indication [Unknown]
  - Macular fibrosis [Unknown]
  - Off label use [Unknown]
